FAERS Safety Report 12795206 (Version 1)
Quarter: 2016Q3

REPORT INFORMATION
  Report Type: Spontaneous
  Country: FR (occurrence: IT)
  Receive Date: 20160929
  Receipt Date: 20160929
  Transmission Date: 20161109
  Serious: Yes (Other)
  Sender: FDA-Public Use
  Company Number: FR-MYLANLABS-2016M1039579

PATIENT

DRUGS (6)
  1. L-THYROXINE                        /00068001/ [Concomitant]
     Active Substance: LEVOTHYROXINE
     Dosage: UNK
     Dates: start: 1991
  2. MERCAPTAMINE [Suspect]
     Active Substance: CYSTEAMINE
     Dosage: 58 MG/KG, QD IN 4 INTAKES
     Dates: start: 200501
  3. MERCAPTAMINE [Suspect]
     Active Substance: CYSTEAMINE
     Indication: CYSTINOSIS
     Dosage: 40 MG/KG, QD
     Dates: start: 200210
  4. MERCAPTAMINE [Suspect]
     Active Substance: CYSTEAMINE
     Dosage: 58 MG/KG, QD IN 4 INTAKES
     Dates: start: 2004
  5. MERCAPTAMINE [Suspect]
     Active Substance: CYSTEAMINE
     Dosage: 27 MG/KG, QD
  6. MERCAPTAMINE [Suspect]
     Active Substance: CYSTEAMINE
     Dosage: 40 MG/KG, QD
     Dates: start: 2006

REACTIONS (3)
  - Osteopenia [Unknown]
  - Bone pain [Unknown]
  - Bone deformity [Unknown]
